FAERS Safety Report 21347670 (Version 1)
Quarter: 2022Q3

REPORT INFORMATION
  Report Type: Spontaneous
  Country: US (occurrence: US)
  Receive Date: 20220919
  Receipt Date: 20220919
  Transmission Date: 20221027
  Serious: No
  Sender: FDA-Public Use
  Company Number: US-IGSA-BIG0018031

PATIENT
  Sex: Male
  Weight: 93 kg

DRUGS (9)
  1. PROLASTIN-C LIQUID [Suspect]
     Active Substance: .ALPHA.1-PROTEINASE INHIBITOR HUMAN
     Indication: Alpha-1 antitrypsin deficiency
     Dosage: 90 MILLIGRAM/KILOGRAM, Q.WK.
     Route: 042
     Dates: start: 202202
  2. PROLASTIN-C LIQUID [Suspect]
     Active Substance: .ALPHA.1-PROTEINASE INHIBITOR HUMAN
     Dosage: 5580 MILLIGRAM, Q.WK.
     Route: 042
     Dates: start: 20180927
  3. ALBUMIN (HUMAN) [Suspect]
     Active Substance: ALBUMIN HUMAN
     Dosage: UNK, Q.WK.
     Route: 042
     Dates: start: 202202
  4. ANORO ELLIPTA [Concomitant]
     Active Substance: UMECLIDINIUM BROMIDE\VILANTEROL TRIFENATATE
  5. LACTULOSE [Concomitant]
     Active Substance: LACTULOSE
  6. NORVASC [Concomitant]
     Active Substance: AMLODIPINE BESYLATE
  7. LASIX [Concomitant]
     Active Substance: FUROSEMIDE
  8. XIFAXAN [Concomitant]
     Active Substance: RIFAXIMIN
  9. VITAMIN D3 [Concomitant]
     Active Substance: CHOLECALCIFEROL

REACTIONS (3)
  - Back pain [Recovering/Resolving]
  - Flushing [Recovering/Resolving]
  - Pyrexia [Recovering/Resolving]
